FAERS Safety Report 7501759-7 (Version None)
Quarter: 2011Q2

REPORT INFORMATION
  Report Type: 
  Country: None (occurrence: None)
  Receive Date: 20110523
  Receipt Date: 20110523
  Transmission Date: 20111010
  Serious: Yes (Life-Threatening, Other)
  Sender: FDA-Public Use
  Company Number: None

PATIENT
  Sex: Male
  Weight: 84.1 kg

DRUGS (1)
  1. PREZISTA [Suspect]
     Indication: HIV INFECTION
     Dosage: 400MG TWICE DAILY PO
     Route: 048
     Dates: start: 20110404, end: 20110406

REACTIONS (9)
  - MALAISE [None]
  - MYOSITIS [None]
  - NIGHTMARE [None]
  - RHABDOMYOLYSIS [None]
  - POLYDIPSIA [None]
  - DEHYDRATION [None]
  - HYPERHIDROSIS [None]
  - PYREXIA [None]
  - MIGRAINE [None]
